FAERS Safety Report 15678095 (Version 1)
Quarter: 2018Q4

REPORT INFORMATION
  Report Type: Spontaneous
  Country: GR (occurrence: GR)
  Receive Date: 20181201
  Receipt Date: 20181201
  Transmission Date: 20190205
  Serious: Yes (Death)
  Sender: FDA-Public Use
  Company Number: GR-BAXTER-2018BAX028909

PATIENT
  Age: 64 Year
  Sex: Male

DRUGS (3)
  1. RITUXIMAB. [Suspect]
     Active Substance: RITUXIMAB
     Indication: CHRONIC LYMPHOCYTIC LEUKAEMIA
     Route: 065
  2. FLUDARABINE [Suspect]
     Active Substance: FLUDARABINE PHOSPHATE
     Indication: CHRONIC LYMPHOCYTIC LEUKAEMIA
     Route: 065
  3. ENDOXAN 1000 MG - POWDER FOR SOLUTION FOR INJECTION [Suspect]
     Active Substance: CYCLOPHOSPHAMIDE
     Indication: CHRONIC LYMPHOCYTIC LEUKAEMIA
     Route: 065

REACTIONS (12)
  - Impaired gastric emptying [Fatal]
  - Hyperphosphataemia [Fatal]
  - Colorectal adenocarcinoma [Fatal]
  - Ascites [Fatal]
  - Lymphadenopathy [Fatal]
  - Rash vesicular [Fatal]
  - Multiple organ dysfunction syndrome [Fatal]
  - Renal injury [Fatal]
  - Leukocytosis [Fatal]
  - Metastases to skin [Fatal]
  - Hepatosplenomegaly [Fatal]
  - Hyperuricaemia [Fatal]
